FAERS Safety Report 18935140 (Version 5)
Quarter: 2021Q4

REPORT INFORMATION
  Report Type: Report from Study
  Country: US (occurrence: US)
  Receive Date: 20210224
  Receipt Date: 20211111
  Transmission Date: 20220303
  Serious: Yes (Death, Hospitalization, Other)
  Sender: FDA-Public Use
  Company Number: US-TAKEDA-US202019559

PATIENT
  Age: 65 Year
  Sex: Female

DRUGS (16)
  1. TEDUGLUTIDE [Suspect]
     Active Substance: TEDUGLUTIDE
     Indication: Short-bowel syndrome
     Dosage: 0.11 MILLILITER, 1X/DAY:QD
     Route: 058
     Dates: end: 20210215
  2. TEDUGLUTIDE [Suspect]
     Active Substance: TEDUGLUTIDE
     Indication: Short-bowel syndrome
     Dosage: 0.11 MILLILITER, 1X/DAY:QD
     Route: 058
     Dates: end: 20210215
  3. TEDUGLUTIDE [Suspect]
     Active Substance: TEDUGLUTIDE
     Indication: Short-bowel syndrome
     Dosage: 0.11 MILLILITER, 1X/DAY:QD
     Route: 058
     Dates: end: 20210215
  4. TEDUGLUTIDE [Suspect]
     Active Substance: TEDUGLUTIDE
     Indication: Short-bowel syndrome
     Dosage: 0.11 MILLILITER, 1X/DAY:QD
     Route: 058
     Dates: end: 20210215
  5. TEDUGLUTIDE [Suspect]
     Active Substance: TEDUGLUTIDE
     Dosage: 1.1 MILLIGRAM
     Route: 058
     Dates: start: 20190203
  6. TEDUGLUTIDE [Suspect]
     Active Substance: TEDUGLUTIDE
     Dosage: 1.1 MILLIGRAM
     Route: 058
     Dates: start: 20190203
  7. TEDUGLUTIDE [Suspect]
     Active Substance: TEDUGLUTIDE
     Dosage: 1.1 MILLIGRAM
     Route: 058
     Dates: start: 20190203
  8. TEDUGLUTIDE [Suspect]
     Active Substance: TEDUGLUTIDE
     Dosage: 1.1 MILLIGRAM
     Route: 058
     Dates: start: 20190203
  9. TEDUGLUTIDE [Suspect]
     Active Substance: TEDUGLUTIDE
     Dosage: 1.1 MILLIGRAM
     Route: 058
     Dates: start: 20190302, end: 20210930
  10. TEDUGLUTIDE [Suspect]
     Active Substance: TEDUGLUTIDE
     Dosage: 1.1 MILLIGRAM
     Route: 058
     Dates: start: 20190302, end: 20210930
  11. TEDUGLUTIDE [Suspect]
     Active Substance: TEDUGLUTIDE
     Dosage: 1.1 MILLIGRAM
     Route: 058
     Dates: start: 20190302, end: 20210930
  12. TEDUGLUTIDE [Suspect]
     Active Substance: TEDUGLUTIDE
     Dosage: 1.1 MILLIGRAM
     Route: 058
     Dates: start: 20190302, end: 20210930
  13. TEDUGLUTIDE [Suspect]
     Active Substance: TEDUGLUTIDE
     Dosage: 1.1 MILLIGRAM, QOD
     Route: 058
     Dates: start: 20190302, end: 20211106
  14. TEDUGLUTIDE [Suspect]
     Active Substance: TEDUGLUTIDE
     Dosage: 1.1 MILLIGRAM, QOD
     Route: 058
     Dates: start: 20190302, end: 20211106
  15. TEDUGLUTIDE [Suspect]
     Active Substance: TEDUGLUTIDE
     Dosage: 1.1 MILLIGRAM, QOD
     Route: 058
     Dates: start: 20190302, end: 20211106
  16. TEDUGLUTIDE [Suspect]
     Active Substance: TEDUGLUTIDE
     Dosage: 1.1 MILLIGRAM, QOD
     Route: 058
     Dates: start: 20190302, end: 20211106

REACTIONS (7)
  - Death [Fatal]
  - Gastrointestinal haemorrhage [Unknown]
  - Intestinal prolapse [Unknown]
  - Cardiac disorder [Unknown]
  - Stoma complication [Not Recovered/Not Resolved]
  - Pneumonia [Unknown]
  - Fall [Unknown]

NARRATIVE: CASE EVENT DATE: 20200601
